FAERS Safety Report 4924892-2 (Version None)
Quarter: 2006Q1

REPORT INFORMATION
  Report Type: 
  Country: None (occurrence: None)
  Receive Date: 20060227
  Receipt Date: 20050113
  Transmission Date: 20060701
  Serious: Yes (Hospitalization, Other)
  Sender: FDA-Public Use
  Company Number: US-MERCK-0501USA02239

PATIENT
  Age: 50 Year
  Sex: Female
  Weight: 67 kg

DRUGS (3)
  1. VIOXX [Suspect]
     Indication: ARTHRITIS
     Route: 048
     Dates: start: 19990101, end: 20040101
  2. VIOXX [Suspect]
     Indication: NECK PAIN
     Route: 048
     Dates: start: 19990101, end: 20040101
  3. IBUPROFEN [Concomitant]
     Route: 065

REACTIONS (5)
  - CARDIAC DISORDER [None]
  - MYOCARDIAL INFARCTION [None]
  - THROMBOSIS [None]
  - TRANSIENT ISCHAEMIC ATTACK [None]
  - VASCULAR INJURY [None]
